FAERS Safety Report 18446549 (Version 1)
Quarter: 2020Q4

REPORT INFORMATION
  Report Type: Spontaneous
  Country: US (occurrence: US)
  Receive Date: 20201030
  Receipt Date: 20201030
  Transmission Date: 20210114
  Serious: No
  Sender: FDA-Public Use
  Company Number: US-NOVOPROD-701517

PATIENT
  Sex: Male

DRUGS (1)
  1. TRESIBA [Suspect]
     Active Substance: INSULIN DEGLUDEC
     Indication: TYPE 2 DIABETES MELLITUS
     Dosage: 37 IU, QD (37 UNITS ONCE DAILY)
     Route: 058
     Dates: start: 2017

REACTIONS (5)
  - Injection site pain [Unknown]
  - Dyspepsia [Not Recovered/Not Resolved]
  - Back pain [Not Recovered/Not Resolved]
  - Product selection error [Not Recovered/Not Resolved]
  - Abdominal pain [Not Recovered/Not Resolved]
